FAERS Safety Report 7779955-3 (Version None)
Quarter: 2011Q3

REPORT INFORMATION
  Report Type: 
  Country: None (occurrence: None)
  Receive Date: 20110927
  Receipt Date: 20110916
  Transmission Date: 20111222
  Serious: Yes (Other)
  Sender: FDA-Public Use
  Company Number: ZA-JNJFOC-20110907543

PATIENT
  Age: 18 Year

DRUGS (1)
  1. INFLIXIMAB, RECOMBINANT [Suspect]
     Indication: JUVENILE ARTHRITIS
     Dosage: FOR ABOUT 3 YEARS
     Route: 042

REACTIONS (1)
  - IRIDOCYCLITIS [None]
